FAERS Safety Report 8691329 (Version 2)
Quarter: 2012Q4

REPORT INFORMATION
  Report Type: Report from Study
  Country: US (occurrence: None)
  Receive Date: 20120712
  Receipt Date: 20120816
  Transmission Date: 20130627
  Serious: Yes (Death, Hospitalization)
  Sender: FDA-Public Use
  Company Number: 136262

PATIENT
  Age: 59 Year
  Sex: Male
  Weight: 72 kg

DRUGS (1)
  1. LEUCOVORIN CALCIUM [Suspect]
     Indication: COLORECTAL CANCER METASTATIC
     Dosage: 400MG/M2 INTRAVENOUSLY ON DAY NOE OF EACH
     Dates: start: 20120425, end: 20120524

REACTIONS (7)
  - Pneumonia [None]
  - Sepsis [None]
  - Fatigue [None]
  - Diarrhoea [None]
  - Anaemia [None]
  - Blood potassium decreased [None]
  - General physical health deterioration [None]
